FAERS Safety Report 9361758 (Version 1)
Quarter: 2013Q2

REPORT INFORMATION
  Report Type: Spontaneous
  Country: FR (occurrence: FR)
  Receive Date: 20130621
  Receipt Date: 20130621
  Transmission Date: 20140414
  Serious: Yes (Hospitalization)
  Sender: FDA-Public Use
  Company Number: FR-BRISTOL-MYERS SQUIBB COMPANY-19025337

PATIENT
  Age: 64 Year
  Sex: Male

DRUGS (5)
  1. ORENCIA FOR INJ [Suspect]
     Indication: RHEUMATOID ARTHRITIS
     Route: 042
     Dates: start: 201105, end: 201303
  2. METOJECT [Concomitant]
     Dosage: 10 MG/ML
     Route: 042
     Dates: start: 201003
  3. SPECIAFOLDINE [Concomitant]
     Dates: start: 201003
  4. PLAVIX [Concomitant]
     Route: 048
     Dates: start: 2010
  5. CRESTOR [Concomitant]
     Route: 048
     Dates: start: 2010

REACTIONS (2)
  - Vasculitis [Recovering/Resolving]
  - Extremity necrosis [Unknown]
